FAERS Safety Report 18992310 (Version 6)
Quarter: 2021Q3

REPORT INFORMATION
  Report Type: Report from Study
  Country: ES (occurrence: ES)
  Receive Date: 20210310
  Receipt Date: 20210805
  Transmission Date: 20211014
  Serious: Yes (Other)
  Sender: FDA-Public Use
  Company Number: ES-UCBSA-2021011018

PATIENT
  Sex: Female

DRUGS (5)
  1. IBUPROFEN. [Concomitant]
     Active Substance: IBUPROFEN
     Indication: PHARYNGOTONSILLITIS
     Dosage: 600 MILLIGRAM, UNK
     Route: 048
     Dates: start: 20201201, end: 20201209
  2. PREDNISONE. [Concomitant]
     Active Substance: PREDNISONE
     Indication: PHARYNGOTONSILLITIS
     Dosage: 30 MILLIGRAM, ONCE DAILY (QD)
     Route: 048
     Dates: start: 20201215, end: 20201219
  3. PREDNISONE. [Concomitant]
     Active Substance: PREDNISONE
     Indication: INFECTIOUS MONONUCLEOSIS
     Dosage: 30 MILLIGRAM, ONCE DAILY (QD)
     Route: 048
     Dates: start: 20210203, end: 20210210
  4. CERTOLIZUMAB PEGOL AVA [Suspect]
     Active Substance: CERTOLIZUMAB PEGOL
     Indication: PRODUCT USED FOR UNKNOWN INDICATION
     Dosage: UNK
  5. AMOXICILLINE [AMOXICILLIN] [Concomitant]
     Active Substance: AMOXICILLIN
     Indication: PHARYNGOTONSILLITIS
     Dosage: 500 MILLIGRAM, 3X/DAY (TID)
     Route: 048
     Dates: start: 20201201, end: 20201209

REACTIONS (3)
  - Pharyngotonsillitis [Recovered/Resolved]
  - Goitre [Not Recovered/Not Resolved]
  - Infectious mononucleosis [Recovered/Resolved]

NARRATIVE: CASE EVENT DATE: 20201201
